FAERS Safety Report 20452046 (Version 3)
Quarter: 2024Q4

REPORT INFORMATION
  Report Type: Spontaneous
  Country: JP (occurrence: JP)
  Receive Date: 20220209
  Receipt Date: 20241023
  Transmission Date: 20250114
  Serious: Yes (Other)
  Sender: SANOFI AVENTIS
  Company Number: JP-SAKK-2022SA040841AA

PATIENT
  Age: 17 Year
  Sex: Male

DRUGS (1)
  1. DUPIXENT [Suspect]
     Active Substance: DUPILUMAB
     Indication: Dermatitis atopic
     Dosage: UNK
     Route: 058

REACTIONS (5)
  - Uveitis [Recovering/Resolving]
  - Conjunctival hyperaemia [Recovering/Resolving]
  - Conjunctival follicles [Recovering/Resolving]
  - Blepharitis [Unknown]
  - Therapeutic product effect incomplete [Unknown]
